FAERS Safety Report 11641209 (Version 1)
Quarter: 2015Q4

REPORT INFORMATION
  Report Type: Report from Study
  Country: US (occurrence: US)
  Receive Date: 20151019
  Receipt Date: 20151019
  Transmission Date: 20160304
  Serious: No
  Sender: FDA-Public Use
  Company Number: US-VIIV HEALTHCARE LIMITED-US2015GSK147653

PATIENT
  Age: 21 Year
  Sex: Male

DRUGS (1)
  1. ABACAVIR SULPHATE+LAMIVUDINE+ZIDOVUDINE FILM-COATED TABLET [Suspect]
     Active Substance: ABACAVIR SULFATE\LAMIVUDINE\ZIDOVUDINE
     Indication: HIV INFECTION
     Dosage: UNK, U

REACTIONS (2)
  - Sleep disorder [Unknown]
  - Treatment failure [Unknown]
